FAERS Safety Report 7095148-X (Version None)
Quarter: 2010Q4

REPORT INFORMATION
  Report Type: 
  Country: None (occurrence: None)
  Receive Date: 20101111
  Receipt Date: 20101101
  Transmission Date: 20110411
  Serious: Yes (Hospitalization)
  Sender: FDA-Public Use
  Company Number: CA-JNJFOC-20101006442

PATIENT
  Age: 40 Year
  Sex: Female
  Weight: 74.84 kg

DRUGS (13)
  1. STELARA [Suspect]
     Indication: PSORIASIS
     Route: 058
  2. NEURONTIN [Concomitant]
  3. CLONAZEPAM [Concomitant]
  4. VITAMIN D [Concomitant]
  5. CYMBALTA [Concomitant]
  6. INVEGA [Concomitant]
  7. CRESTOR [Concomitant]
  8. PREVACID [Concomitant]
  9. CELEBREX [Concomitant]
  10. SINGULAIR [Concomitant]
  11. SEROQUEL XR [Concomitant]
  12. CALTRATE [Concomitant]
  13. MATERNA [Concomitant]

REACTIONS (3)
  - HYPOGLYCAEMIA [None]
  - RASH [None]
  - WEIGHT INCREASED [None]
